FAERS Safety Report 8859914 (Version 5)
Quarter: 2013Q2

REPORT INFORMATION
  Report Type: Report from Study
  Country: US (occurrence: US)
  Receive Date: 20121025
  Receipt Date: 20130522
  Transmission Date: 20140414
  Serious: No
  Sender: FDA-Public Use
  Company Number: US-VERTEX PHARMACEUTICAL INC.-2012-023331

PATIENT
  Age: 10 Year
  Sex: Female
  Weight: 27 kg

DRUGS (1)
  1. VX-770 [Suspect]
     Indication: CYSTIC FIBROSIS
     Dosage: 150 MG, BID
     Route: 048
     Dates: start: 20120530

REACTIONS (4)
  - Gastric infection [Recovered/Resolved]
  - Self-induced vomiting [Not Recovered/Not Resolved]
  - School refusal [Not Recovered/Not Resolved]
  - Abdominal pain upper [Not Recovered/Not Resolved]
